FAERS Safety Report 9119037 (Version 4)
Quarter: 2013Q3

REPORT INFORMATION
  Report Type: Spontaneous
  Country: US (occurrence: US)
  Receive Date: 20130226
  Receipt Date: 20130816
  Transmission Date: 20140515
  Serious: No
  Sender: FDA-Public Use
  Company Number: US-BIOGENIDEC-2013BI016330

PATIENT
  Age: 68 Year
  Sex: Female

DRUGS (1)
  1. TYSABRI [Suspect]
     Indication: MULTIPLE SCLEROSIS
     Route: 042
     Dates: start: 20090210

REACTIONS (7)
  - Burning sensation [Not Recovered/Not Resolved]
  - Pain in extremity [Recovered/Resolved]
  - Stress [Not Recovered/Not Resolved]
  - Herpes zoster [Recovered/Resolved]
  - Pruritus [Not Recovered/Not Resolved]
  - Multiple sclerosis relapse [Recovered/Resolved]
  - Chest pain [Recovered/Resolved]
